FAERS Safety Report 4606735-X (Version None)
Quarter: 2005Q1

REPORT INFORMATION
  Report Type: 
  Country: None (occurrence: None)
  Receive Date: 20050116
  Receipt Date: 20041130
  Transmission Date: 20050727
  Serious: No
  Sender: FDA-Public Use
  Company Number: HQWYE714801DEC04

PATIENT
  Sex: 0

DRUGS (1)
  1. EFFEXOR [Suspect]

REACTIONS (1)
  - TARDIVE DYSKINESIA [None]
